FAERS Safety Report 12154203 (Version 1)
Quarter: 2016Q1

REPORT INFORMATION
  Report Type: Spontaneous
  Country: US (occurrence: None)
  Receive Date: 20160304
  Receipt Date: 20160304
  Transmission Date: 20160526
  Serious: No
  Sender: FDA-Public Use
  Company Number: None

PATIENT
  Age: 50 Year
  Sex: Female
  Weight: 65.77 kg

DRUGS (1)
  1. ADDERALL [Suspect]
     Active Substance: AMPHETAMINE ASPARTATE\AMPHETAMINE SULFATE\DEXTROAMPHETAMINE SACCHARATE\DEXTROAMPHETAMINE SULFATE
     Indication: ATTENTION DEFICIT/HYPERACTIVITY DISORDER
     Dates: start: 20160222, end: 20160303

REACTIONS (12)
  - Depression [None]
  - Obsessive thoughts [None]
  - Drug ineffective [None]
  - Disturbance in attention [None]
  - Insomnia [None]
  - Nausea [None]
  - Anxiety [None]
  - Crying [None]
  - Tachycardia [None]
  - Condition aggravated [None]
  - Impaired work ability [None]
  - Activities of daily living impaired [None]

NARRATIVE: CASE EVENT DATE: 20160222
